FAERS Safety Report 17603209 (Version 1)
Quarter: 2020Q1

REPORT INFORMATION
  Report Type: Other
  Country: SG (occurrence: SG)
  Receive Date: 20200331
  Receipt Date: 20200331
  Transmission Date: 20200409
  Serious: Yes (Other)
  Sender: FDA-Public Use
  Company Number: SG-DEXPHARM-20200279

PATIENT
  Sex: Female

DRUGS (4)
  1. FUROSEMIDE. [Interacting]
     Active Substance: FUROSEMIDE
  2. DEXAMETHASONE NON DEXCEL PRODUCT [Suspect]
     Active Substance: DEXAMETHASONE
     Indication: PAIN
  3. DICLOFENAC NON DEXCEL PRODUCT [Interacting]
     Active Substance: DICLOFENAC
  4. CHLORPHENAMINE [Interacting]
     Active Substance: CHLORPHENIRAMINE MALEATE

REACTIONS (2)
  - Drug interaction [Unknown]
  - Chest discomfort [Unknown]
